FAERS Safety Report 11863290 (Version 1)
Quarter: 2015Q4

REPORT INFORMATION
  Report Type: Spontaneous
  Country: GB (occurrence: GB)
  Receive Date: 20151223
  Receipt Date: 20151223
  Transmission Date: 20160305
  Serious: Yes (Other)
  Sender: FDA-Public Use
  Company Number: GB-ROCHE-1681127

PATIENT
  Age: 55 Year
  Sex: Male

DRUGS (4)
  1. LOW MOLECULAR WEIGHT HEPARIN [Concomitant]
     Active Substance: UNSPECIFIED INGREDIENT
     Indication: ACUTE MYOCARDIAL INFARCTION
  2. TICAGRELOR [Suspect]
     Active Substance: TICAGRELOR
     Indication: PREMEDICATION
     Route: 065
  3. METALYSE [Suspect]
     Active Substance: TENECTEPLASE
     Indication: ACUTE MYOCARDIAL INFARCTION
     Route: 065
  4. ASPIRIN. [Concomitant]
     Active Substance: ASPIRIN
     Indication: ACUTE MYOCARDIAL INFARCTION
     Route: 065

REACTIONS (4)
  - Pulmonary haemorrhage [Unknown]
  - Arterial thrombosis [Unknown]
  - Pneumonitis [Unknown]
  - Arterial stenosis [Unknown]
